FAERS Safety Report 8443275-4 (Version None)
Quarter: 2012Q2

REPORT INFORMATION
  Report Type: 
  Country: None (occurrence: None)
  Receive Date: 20120617
  Receipt Date: 20120611
  Transmission Date: 20120825
  Serious: Yes (Death)
  Sender: FDA-Public Use
  Company Number: US-TEVA-342780USA

PATIENT
  Age: 62 Year
  Sex: Female
  Weight: 121 kg

DRUGS (4)
  1. SIMVASTATIN [Concomitant]
  2. FLUOXETINE [Concomitant]
  3. CLONAZEPAM [Concomitant]
  4. GABAPENTIN [Suspect]

REACTIONS (2)
  - INTENTIONAL OVERDOSE [None]
  - TOXICITY TO VARIOUS AGENTS [None]
